FAERS Safety Report 5535271-1 (Version None)
Quarter: 2007Q4

REPORT INFORMATION
  Report Type: 
  Country: None (occurrence: None)
  Receive Date: 20071119
  Receipt Date: 20071002
  Transmission Date: 20080405
  Serious: No
  Sender: FDA-Public Use
  Company Number: TPA2007A01873

PATIENT
  Age: 72 Year
  Sex: Female
  Weight: 51.2565 kg

DRUGS (3)
  1. ROZEREM [Suspect]
     Indication: INSOMNIA
     Dosage: 8 MG, QHS, AS REQUIRED, PER ORAL
     Route: 048
     Dates: start: 20070816, end: 20070818
  2. EVISTA [Concomitant]
  3. LEVOTHYROXINE SODIUM [Concomitant]

REACTIONS (2)
  - ABDOMINAL PAIN UPPER [None]
  - INITIAL INSOMNIA [None]
